FAERS Safety Report 9022091 (Version 1)
Quarter: 2013Q1

REPORT INFORMATION
  Report Type: Spontaneous
  Country: FR (occurrence: FR)
  Receive Date: 20130118
  Receipt Date: 20130118
  Transmission Date: 20140127
  Serious: Yes (Life-Threatening, Hospitalization)
  Sender: FDA-Public Use
  Company Number: FR-GLAXOSMITHKLINE-B0858013A

PATIENT
  Age: 40 None
  Sex: Female

DRUGS (2)
  1. LAMICTAL [Suspect]
     Indication: EPILEPSY
     Route: 048
     Dates: start: 20121117, end: 20121127
  2. DEPAKINE CHRONO [Concomitant]
     Indication: EPILEPSY
     Route: 048

REACTIONS (21)
  - Toxic epidermal necrolysis [Recovered/Resolved]
  - Odynophagia [Recovered/Resolved]
  - Pyrexia [Recovered/Resolved]
  - Cough [Recovered/Resolved]
  - Generalised erythema [Recovered/Resolved]
  - Pruritus [Recovered/Resolved]
  - Generalised oedema [Recovered/Resolved]
  - Dermatitis exfoliative [Recovered/Resolved]
  - Oral disorder [Recovered/Resolved]
  - Skin disorder [Recovered/Resolved]
  - Rales [Recovered/Resolved]
  - Hypoxia [Recovered/Resolved]
  - Leukocytosis [Recovered/Resolved]
  - Dyspnoea [Recovered/Resolved]
  - Pulmonary interstitial emphysema syndrome [Recovered/Resolved]
  - Hypotension [Recovered/Resolved]
  - Atelectasis [Recovered/Resolved]
  - Skin lesion [Recovered/Resolved]
  - Genital erythema [Recovered/Resolved]
  - General physical health deterioration [Recovered/Resolved]
  - Lung infection [Recovered/Resolved]
